FAERS Safety Report 9098624 (Version 1)
Quarter: 2013Q1

REPORT INFORMATION
  Report Type: Spontaneous
  Country: US (occurrence: US)
  Receive Date: 20130214
  Receipt Date: 20130214
  Transmission Date: 20140127
  Serious: No
  Sender: FDA-Public Use
  Company Number: US-PFIZER INC-2013057831

PATIENT
  Age: 64 Year
  Sex: Female

DRUGS (5)
  1. LIPITOR [Suspect]
     Indication: BLOOD CHOLESTEROL INCREASED
     Dosage: 40 MG, UNK
  2. LIPITOR [Suspect]
     Dosage: 80 MG, DAILY
     Dates: end: 201209
  3. LIPITOR [Suspect]
     Dosage: UNK
  4. ATORVASTATIN CALCIUM [Suspect]
     Indication: BLOOD CHOLESTEROL INCREASED
     Dosage: 80 MG, DAILY
     Dates: start: 201210
  5. METFORMIN HCL [Suspect]
     Indication: DIABETES MELLITUS
     Dosage: UNK

REACTIONS (4)
  - Nausea [Recovered/Resolved]
  - Nausea [Not Recovered/Not Resolved]
  - Abdominal discomfort [Not Recovered/Not Resolved]
  - Drug ineffective [Unknown]
